FAERS Safety Report 24432971 (Version 1)
Quarter: 2024Q4

REPORT INFORMATION
  Report Type: Spontaneous
  Country: FR (occurrence: FR)
  Receive Date: 20241014
  Receipt Date: 20241014
  Transmission Date: 20250115
  Serious: Yes (Other)
  Sender: CELLTRION
  Company Number: None

PATIENT

DRUGS (19)
  1. RITUXIMAB [Suspect]
     Active Substance: RITUXIMAB
     Indication: Bone marrow transplant
     Dosage: UNK
     Route: 042
     Dates: start: 20231107, end: 20231107
  2. NITROUS OXIDE\OXYGEN [Suspect]
     Active Substance: NITROUS OXIDE\OXYGEN
     Indication: Pain
  3. ENALAPRIL [Suspect]
     Active Substance: ENALAPRIL
     Indication: Hypertension
     Dosage: UNK
     Route: 048
     Dates: start: 20240223
  4. NEURONTIN [Suspect]
     Active Substance: GABAPENTIN
     Indication: Neuralgia
     Dosage: 600 MG, EVERY 1 DAY
     Route: 048
     Dates: start: 20240223
  5. BACTRIM [Suspect]
     Active Substance: SULFAMETHOXAZOLE\TRIMETHOPRIM
     Indication: Prophylaxis
     Dosage: 800 MG, EVERY 2 DAYS
     Route: 048
     Dates: start: 202311
  6. MELATONIN [Concomitant]
     Active Substance: MELATONIN
  7. URSODIOL [Concomitant]
     Active Substance: URSODIOL
  8. LETERMOVIR [Concomitant]
     Active Substance: LETERMOVIR
  9. OXYCODONE [Concomitant]
     Active Substance: OXYCODONE
  10. SERTRALINE [Concomitant]
     Active Substance: SERTRALINE HYDROCHLORIDE
  11. ACETAMINOPHEN [Concomitant]
     Active Substance: ACETAMINOPHEN
  12. ALPRAZOLAM [Concomitant]
     Active Substance: ALPRAZOLAM
  13. PHLOROGLUCINOL [Concomitant]
     Active Substance: PHLOROGLUCINOL
  14. NEFOPAM [Concomitant]
     Active Substance: NEFOPAM
  15. ONDANSETRON [Concomitant]
     Active Substance: ONDANSETRON
  16. VALACYCLOVIR HYDROCHLORIDE [Concomitant]
     Active Substance: VALACYCLOVIR HYDROCHLORIDE
  17. ENOXAPARIN SODIUM [Concomitant]
     Active Substance: ENOXAPARIN SODIUM
  18. LANSOPRAZOLE [Concomitant]
     Active Substance: LANSOPRAZOLE
  19. AMITRIPTYLINE [Concomitant]
     Active Substance: AMITRIPTYLINE

REACTIONS (2)
  - Hypoaesthesia [Recovering/Resolving]
  - Intentional product use issue [Unknown]

NARRATIVE: CASE EVENT DATE: 20240229
